FAERS Safety Report 8172198-3 (Version None)
Quarter: 2012Q1

REPORT INFORMATION
  Report Type: 
  Country: None (occurrence: None)
  Receive Date: 20120228
  Receipt Date: 20120220
  Transmission Date: 20120608
  Serious: Yes (Other)
  Sender: FDA-Public Use
  Company Number: US-ASTRAZENECA-2011SE16938

PATIENT
  Age: 59 Year
  Sex: Female
  Weight: 72.6 kg

DRUGS (14)
  1. DYPREXA [Concomitant]
  2. NEURONTIN [Concomitant]
     Indication: BIPOLAR DISORDER
  3. CLARINEX [Concomitant]
  4. SYMBICORT [Suspect]
     Indication: ASTHMA
     Dosage: SOMETIMES TAKE FOUR PUFFS BY MISTAKE
     Route: 055
  5. CRESTOR [Suspect]
     Indication: BLOOD CHOLESTEROL INCREASED
     Route: 048
     Dates: start: 20120101, end: 20120215
  6. RISPERDAL [Concomitant]
     Indication: BIPOLAR DISORDER
  7. XOPENEX [Concomitant]
     Indication: MULTIPLE ALLERGIES
  8. SINGULAIR [Concomitant]
     Indication: MULTIPLE ALLERGIES
  9. NORVASC [Concomitant]
     Indication: HYPERTENSION
  10. DIOVAN [Concomitant]
     Indication: HYPERTENSION
  11. LITHIUM [Concomitant]
     Indication: BIPOLAR DISORDER
  12. CLARITIN [Concomitant]
     Indication: MULTIPLE ALLERGIES
  13. SYMBICORT [Suspect]
     Dosage: 160/4.5, TWO PUFFS, TWICE A DAY
     Route: 055
     Dates: start: 20100101
  14. HIGH BLOOD PRESSURE MEDICATION [Concomitant]
     Indication: HYPERTENSION

REACTIONS (4)
  - INCORRECT DOSE ADMINISTERED [None]
  - CIRCUMSTANCE OR INFORMATION CAPABLE OF LEADING TO MEDICATION ERROR [None]
  - HEPATITIS A VIRUS TEST POSITIVE [None]
  - ABDOMINAL PAIN UPPER [None]
